FAERS Safety Report 6232578-X (Version None)
Quarter: 2009Q2

REPORT INFORMATION
  Report Type: 
  Country: None (occurrence: None)
  Receive Date: 20090617
  Receipt Date: 20090611
  Transmission Date: 20091009
  Serious: Yes (Other)
  Sender: FDA-Public Use
  Company Number: US-ASTRAZENECA-2009UW14963

PATIENT

DRUGS (2)
  1. SEROQUEL [Suspect]
     Route: 048
  2. TREXIMET [Suspect]
     Indication: MIGRAINE
     Route: 048

REACTIONS (1)
  - SEROTONIN SYNDROME [None]
